FAERS Safety Report 7897631-3 (Version None)
Quarter: 2011Q4

REPORT INFORMATION
  Report Type: 
  Country: None (occurrence: None)
  Receive Date: 20111028
  Receipt Date: 20110513
  Transmission Date: 20120403
  Serious: Yes (Other)
  Sender: FDA-Public Use
  Company Number: PHEH2011US00451

PATIENT
  Sex: Male

DRUGS (3)
  1. ALBUTEROL [Concomitant]
  2. TRILEPTAL [Suspect]
     Indication: CONVULSION
     Dates: start: 20090213, end: 20090304
  3. RANITIDINE HYDROCHLORIDE [Concomitant]

REACTIONS (19)
  - INJURY [None]
  - OROPHARYNGEAL PAIN [None]
  - LYMPHADENOPATHY [None]
  - ORAL PAIN [None]
  - LYMPHADENITIS [None]
  - EYE PRURITUS [None]
  - STRESS [None]
  - PYREXIA [None]
  - BLISTER [None]
  - CONJUNCTIVITIS [None]
  - OCULAR ICTERUS [None]
  - DISABILITY [None]
  - ERYTHEMA [None]
  - DECREASED INTEREST [None]
  - STEVENS-JOHNSON SYNDROME [None]
  - PAIN [None]
  - EYE SWELLING [None]
  - DRY EYE [None]
  - RASH ERYTHEMATOUS [None]
